FAERS Safety Report 24147043 (Version 1)
Quarter: 2024Q3

REPORT INFORMATION
  Report Type: Spontaneous
  Country: CN (occurrence: CN)
  Receive Date: 20240729
  Receipt Date: 20240729
  Transmission Date: 20241017
  Serious: Yes (Hospitalization)
  Sender: ELI LILLY AND CO
  Company Number: CN-ELI_LILLY_AND_COMPANY-CN202407014850

PATIENT
  Age: 85 Year
  Sex: Male

DRUGS (3)
  1. BARICITINIB [Suspect]
     Active Substance: BARICITINIB
     Indication: COVID-19
     Dosage: 2 MG, DAILY
     Route: 065
     Dates: start: 20230103, end: 20230106
  2. RO-0622 [Suspect]
     Active Substance: RO-0622
     Indication: Antiviral treatment
     Dosage: 5 MG, DAILY
     Route: 065
     Dates: start: 20221229
  3. RO-0622 [Suspect]
     Active Substance: RO-0622
     Dosage: 3 MG, UNKNOWN
     Route: 065
     Dates: start: 20230102, end: 20230104

REACTIONS (11)
  - Hyperamylasaemia [Recovered/Resolved]
  - Liver disorder [Recovered/Resolved]
  - Lipase increased [Recovered/Resolved]
  - Gangrene [Recovering/Resolving]
  - Peripheral arterial occlusive disease [Unknown]
  - Pancreatic enzymes increased [Unknown]
  - Blood creatine phosphokinase increased [Recovered/Resolved]
  - High density lipoprotein increased [Unknown]
  - Low density lipoprotein increased [Unknown]
  - Alanine aminotransferase increased [Recovered/Resolved]
  - Aspartate aminotransferase increased [Recovered/Resolved]

NARRATIVE: CASE EVENT DATE: 20230104
